FAERS Safety Report 5410345-4 (Version None)
Quarter: 2007Q3

REPORT INFORMATION
  Report Type: 
  Country: None (occurrence: None)
  Receive Date: 20070808
  Receipt Date: 20070723
  Transmission Date: 20080115
  Serious: Yes (Death)
  Sender: FDA-Public Use
  Company Number: 2007US001814

PATIENT
  Age: 33 Year
  Sex: Male

DRUGS (14)
  1. AMBISOME [Suspect]
     Indication: BRONCHOPULMONARY ASPERGILLOSIS
     Dosage: 140 MG, UID/QD, IV DRIP
     Route: 041
     Dates: start: 20070626, end: 20070630
  2. VFEND [Suspect]
     Indication: BRONCHOPULMONARY ASPERGILLOSIS
     Dosage: 480 MG, UID/QD, IV DRIP
     Route: 041
     Dates: start: 20070614, end: 20070625
  3. DECADRON [Concomitant]
  4. ERYTHROCIN [Concomitant]
  5. CELLCEPT [Concomitant]
  6. SULFAMETHOXAZOLE + TRIMETHOPRIM [Concomitant]
  7. LASIX [Concomitant]
  8. AMIKACIN SULFATE [Concomitant]
  9. MAXIPIME [Concomitant]
  10. ETOPOSIDE [Concomitant]
  11. ALLOPURINOL [Concomitant]
  12. SOLU-CORTEF [Concomitant]
  13. METHYLPREDNISOLONE [Concomitant]
  14. DOPAMINE HYDROCHLORIDE [Concomitant]

REACTIONS (6)
  - ALANINE AMINOTRANSFERASE INCREASED [None]
  - ASPARTATE AMINOTRANSFERASE INCREASED [None]
  - BRONCHOPULMONARY ASPERGILLOSIS [None]
  - CARDIO-RESPIRATORY ARREST [None]
  - CONDITION AGGRAVATED [None]
  - LUNG INFILTRATION [None]
